FAERS Safety Report 9692302 (Version 2)
Quarter: 2013Q4

REPORT INFORMATION
  Report Type: Spontaneous
  Country: IT (occurrence: IT)
  Receive Date: 20131118
  Receipt Date: 20131118
  Transmission Date: 20140711
  Serious: Yes (Other)
  Sender: FDA-Public Use
  Company Number: IT-ACCORD-017594

PATIENT
  Age: 62 Year
  Sex: Male
  Weight: 63 kg

DRUGS (10)
  1. GEMCITABINE [Suspect]
     Indication: LUNG ADENOCARCINOMA
     Dosage: ADMINISTERD ON DAY 1 AND DAY 8 OF CYCLE.
     Route: 042
     Dates: start: 20130208, end: 20130424
  2. TRANSTEC [Concomitant]
  3. LYRICA [Concomitant]
  4. NEXIUM [Concomitant]
     Route: 048
  5. OXYCONTIN [Concomitant]
  6. RANIDIL [Concomitant]
     Indication: LUNG ADENOCARCINOMA
     Route: 042
     Dates: start: 20130208, end: 20130424
  7. CISPLATIN [Concomitant]
     Dosage: ADMINISTERED ON DAY 8 OF CYCLE
  8. ONDANSETRON [Concomitant]
     Indication: LUNG ADENOCARCINOMA
     Route: 042
     Dates: start: 20130208, end: 20130424
  9. SOLDESAM [Concomitant]
     Indication: LUNG ADENOCARCINOMA
     Route: 042
     Dates: start: 20130208, end: 20130424
  10. MEPRAL [Concomitant]

REACTIONS (9)
  - Dyspnoea [Unknown]
  - Constipation [Unknown]
  - Diplopia [Unknown]
  - Fatigue [Unknown]
  - Formication [Unknown]
  - Stomatitis [Unknown]
  - Dysphemia [Unknown]
  - Spinal pain [Unknown]
  - Tremor [Unknown]
